FAERS Safety Report 21213680 (Version 3)
Quarter: 2022Q3

REPORT INFORMATION
  Report Type: Spontaneous
  Country: US (occurrence: US)
  Receive Date: 20220816
  Receipt Date: 20220915
  Transmission Date: 20221027
  Serious: No
  Sender: FDA-Public Use
  Company Number: US-AMGEN-USASP2022137287

PATIENT
  Age: 57 Year
  Sex: Female
  Weight: 82.1 kg

DRUGS (18)
  1. PROLIA [Suspect]
     Active Substance: DENOSUMAB
     Indication: Osteoporosis postmenopausal
     Dosage: UNK, Q6MO
     Route: 058
     Dates: start: 20190617
  2. METHIMAZOLE [Concomitant]
     Active Substance: METHIMAZOLE
  3. PREDNISONE [Concomitant]
     Active Substance: PREDNISONE
     Dosage: 5 MILLIGRAM, TID
  4. TOPIRAMATE [Concomitant]
     Active Substance: TOPIRAMATE
  5. OMEPRAZOLE [Concomitant]
     Active Substance: OMEPRAZOLE
  6. NALTREXONE [Concomitant]
     Active Substance: NALTREXONE
  7. TRELEGY ELLIPTA [Concomitant]
     Active Substance: FLUTICASONE FUROATE\UMECLIDINIUM BROMIDE\VILANTEROL TRIFENATATE
  8. PAROXETINE [Concomitant]
     Active Substance: PAROXETINE
  9. QUETIAPINE [Concomitant]
     Active Substance: QUETIAPINE
  10. PRAMIPEXOLE [Concomitant]
     Active Substance: PRAMIPEXOLE
  11. HYDROXYZINE [Concomitant]
     Active Substance: HYDROXYZINE HYDROCHLORIDE
  12. BACLOFEN [Concomitant]
     Active Substance: BACLOFEN
  13. VITAMINS [Concomitant]
     Active Substance: VITAMINS
  14. VITAMINS [Concomitant]
     Active Substance: VITAMINS
  15. IRON [Concomitant]
     Active Substance: IRON
  16. HERBALS\TURMERIC [Concomitant]
     Active Substance: HERBALS\TURMERIC
  17. CURCUMIN [Concomitant]
     Active Substance: CURCUMIN
  18. VITAMIN D3 [Concomitant]
     Active Substance: CHOLECALCIFEROL

REACTIONS (3)
  - Tooth extraction [Unknown]
  - Exostosis [Unknown]
  - Blood calcium decreased [Unknown]

NARRATIVE: CASE EVENT DATE: 20200201
